FAERS Safety Report 13582169 (Version 2)
Quarter: 2017Q3

REPORT INFORMATION
  Report Type: Report from Study
  Country: US (occurrence: US)
  Receive Date: 20170525
  Receipt Date: 20170718
  Transmission Date: 20171127
  Serious: No
  Sender: FDA-Public Use
  Company Number: US-JNJFOC-20170313580

PATIENT
  Age: 62 Year
  Sex: Male

DRUGS (10)
  1. IMBRUVICA [Suspect]
     Active Substance: IBRUTINIB
     Indication: CHRONIC LYMPHOCYTIC LEUKAEMIA
     Route: 048
     Dates: start: 20170302
  2. ASPIRIN. [Concomitant]
     Active Substance: ASPIRIN
  3. CLOXACILLIN SODIUM [Concomitant]
     Active Substance: CLOXACILLIN SODIUM
  4. ULTRAVATE [Concomitant]
     Active Substance: HALOBETASOL PROPIONATE
  5. IMBRUVICA [Suspect]
     Active Substance: IBRUTINIB
     Indication: CHRONIC LYMPHOCYTIC LEUKAEMIA
     Route: 048
  6. METOPROLOL SUCCINATE. [Concomitant]
     Active Substance: METOPROLOL SUCCINATE
  7. METRONIDAZOLE. [Concomitant]
     Active Substance: METRONIDAZOLE
  8. LEXAPRO [Concomitant]
     Active Substance: ESCITALOPRAM OXALATE
  9. VITAMIN D [Concomitant]
     Active Substance: CHOLECALCIFEROL
  10. TRIAMCINOLONE ACETONIDE. [Concomitant]
     Active Substance: TRIAMCINOLONE ACETONIDE

REACTIONS (16)
  - Diarrhoea [Recovered/Resolved]
  - Fatigue [Not Recovered/Not Resolved]
  - Red blood cell count decreased [Not Recovered/Not Resolved]
  - Pollakiuria [Not Recovered/Not Resolved]
  - Gout [Not Recovered/Not Resolved]
  - Incorrect dose administered [Unknown]
  - White blood cell count decreased [Recovering/Resolving]
  - Platelet count abnormal [Recovering/Resolving]
  - Lymphocyte count abnormal [Unknown]
  - Therapeutic response unexpected [Unknown]
  - Platelet count decreased [Not Recovered/Not Resolved]
  - Blood uric acid increased [Not Recovered/Not Resolved]
  - Contusion [Unknown]
  - Haemorrhage [Not Recovered/Not Resolved]
  - Increased tendency to bruise [Not Recovered/Not Resolved]
  - Off label use [Unknown]

NARRATIVE: CASE EVENT DATE: 201703
